FAERS Safety Report 8834320 (Version 1)
Quarter: 2012Q4

REPORT INFORMATION
  Report Type: Report from Study
  Country: GB (occurrence: GB)
  Receive Date: 20121010
  Receipt Date: 20121010
  Transmission Date: 20130627
  Serious: Yes (Hospitalization)
  Sender: FDA-Public Use
  Company Number: GB-BAXTER-2012BAX019028

PATIENT
  Age: 9 Year
  Sex: Female
  Weight: 24.5 kg

DRUGS (7)
  1. IFOSFAMIDE [Suspect]
     Indication: MALIGNANT NEOPLASM WITHOUT SPECIFICATION OF SITE
     Route: 042
     Dates: start: 20120305, end: 20120319
  2. MESNA INJECTION [Suspect]
     Indication: MALIGNANT NEOPLASM WITHOUT SPECIFICATION OF SITE
     Route: 042
     Dates: start: 20120305
  3. VINCRISTINE [Suspect]
     Indication: MALIGNANT NEOPLASM WITHOUT SPECIFICATION OF SITE
     Route: 040
     Dates: start: 20120305, end: 20120319
  4. ACTINOMYCIN D [Suspect]
     Indication: MALIGNANT NEOPLASM WITHOUT SPECIFICATION OF SITE
     Route: 040
     Dates: start: 20120305, end: 20120319
  5. DOXORUBICIN [Suspect]
     Indication: MALIGNANT NEOPLASM WITHOUT SPECIFICATION OF SITE
     Route: 042
     Dates: start: 20120305, end: 20120319
  6. COTRIMOXAZOLE [Concomitant]
     Indication: DRUG USE FOR UNKNOWN INDICATION
     Dosage: 360
     Route: 065
     Dates: start: 20120324
  7. POTASSIUM CHLORIDE [Concomitant]
     Indication: DRUG USE FOR UNKNOWN INDICATION
     Route: 065
     Dates: start: 20120320, end: 20120322

REACTIONS (1)
  - Febrile neutropenia [Recovered/Resolved]
